FAERS Safety Report 5075676-9 (Version None)
Quarter: 2006Q3

REPORT INFORMATION
  Report Type: 
  Country: None (occurrence: None)
  Receive Date: 20060809
  Receipt Date: 20060126
  Transmission Date: 20061208
  Serious: Yes (Hospitalization)
  Sender: FDA-Public Use
  Company Number: US-AMGEN-US164519

PATIENT
  Sex: Male
  Weight: 33.6 kg

DRUGS (5)
  1. EPOGEN [Suspect]
     Indication: DIALYSIS
     Dates: start: 20051103
  2. METOPROLOL TARTRATE [Concomitant]
  3. NORVASC [Concomitant]
  4. RENAGEL [Concomitant]
  5. FERRLECIT FOR INJECTION [Concomitant]

REACTIONS (2)
  - ANAEMIA [None]
  - DRUG INEFFECTIVE [None]
